FAERS Safety Report 5796498-7 (Version None)
Quarter: 2008Q3

REPORT INFORMATION
  Report Type: 
  Country: None (occurrence: None)
  Receive Date: 20080701
  Receipt Date: 20080625
  Transmission Date: 20090109
  Serious: Yes (Hospitalization)
  Sender: FDA-Public Use
  Company Number: A0734776A

PATIENT
  Age: 47 Year
  Sex: Female

DRUGS (7)
  1. PAXIL [Suspect]
     Indication: DEPRESSION
     Dosage: 10MG PER DAY
     Route: 048
     Dates: start: 19950101, end: 20060101
  2. PAROXETINE HCL [Suspect]
     Indication: DEPRESSION
     Route: 048
     Dates: start: 20060101, end: 20071201
  3. LAMICTAL [Suspect]
     Dosage: 200MG PER DAY
     Route: 048
     Dates: start: 20071201
  4. LITHIUM CARBONATE [Suspect]
     Dates: end: 19950101
  5. PAROXETINE HCL [Concomitant]
  6. CYMBALTA [Concomitant]
  7. ATIVAN [Concomitant]

REACTIONS (8)
  - ANOREXIA [None]
  - DIZZINESS [None]
  - DRUG INTERACTION [None]
  - FATIGUE [None]
  - INSOMNIA [None]
  - MALAISE [None]
  - WEIGHT INCREASED [None]
  - WITHDRAWAL SYNDROME [None]
